FAERS Safety Report 4429915-5 (Version None)
Quarter: 2004Q3

REPORT INFORMATION
  Report Type: 
  Country: None (occurrence: None)
  Receive Date: 20040816
  Receipt Date: 20040816
  Transmission Date: 20050211
  Serious: Yes (Other)
  Sender: FDA-Public Use
  Company Number: None

PATIENT
  Sex: Female
  Weight: 73.0291 kg

DRUGS (2)
  1. REMERON [Suspect]
     Indication: DEPRESSION
     Dosage: 15 MG QHS
     Dates: start: 20040624, end: 20040713
  2. REMERON [Suspect]
     Indication: INSOMNIA
     Dosage: 15 MG QHS
     Dates: start: 20040624, end: 20040713

REACTIONS (2)
  - ANXIETY [None]
  - FEELING JITTERY [None]
